FAERS Safety Report 8783286 (Version 4)
Quarter: 2013Q2

REPORT INFORMATION
  Report Type: Report from Study
  Country: JP (occurrence: JP)
  Receive Date: 20120913
  Receipt Date: 20130620
  Transmission Date: 20140414
  Serious: Yes (Life-Threatening)
  Sender: FDA-Public Use
  Company Number: JP-009507513-2012SP033835

PATIENT
  Age: 53 Year
  Sex: Male
  Weight: 56 kg

DRUGS (15)
  1. PEGINTRON [Suspect]
     Indication: CHRONIC HEPATITIS C
     Dosage: 1.5 MICROGRAM PER KILOGRAM, QW
     Route: 058
     Dates: start: 20120228, end: 20120313
  2. PEGINTRON [Suspect]
     Dosage: 1.2 MICROGRAM PER KILOGRAM, QW
     Route: 058
     Dates: start: 20120320, end: 20120326
  3. PEGINTRON [Suspect]
     Dosage: 1.5 MICROGRAM PER KILOGRAM, QW
     Route: 058
     Dates: start: 20120327, end: 20120507
  4. PEGINTRON [Suspect]
     Dosage: 60 MICROGRAM/BODY, QW
     Route: 058
     Dates: start: 20120605, end: 20120828
  5. REBETOL [Suspect]
     Indication: CHRONIC HEPATITIS C
     Dosage: 600 MG, QD
     Route: 048
     Dates: start: 20120228, end: 20120507
  6. REBETOL [Suspect]
     Dosage: 400 MG, QD
     Route: 048
     Dates: start: 20120605, end: 20120611
  7. REBETOL [Suspect]
     Dosage: 600 MG, QD
     Route: 048
     Dates: start: 20120612
  8. TELAVIC [Suspect]
     Indication: CHRONIC HEPATITIS C
     Dosage: 2250 MG, QD
     Route: 048
     Dates: start: 20120228
  9. TELAVIC [Suspect]
     Dosage: 1500 MG, QD
     Route: 048
     Dates: start: 20120403, end: 20120409
  10. TELAVIC [Suspect]
     Dosage: 2250 MG, QD
     Route: 048
     Dates: start: 20120410
  11. TELAVIC [Suspect]
     Dosage: 1500 MG, QD
     Route: 048
     Dates: start: 20120417, end: 20120507
  12. TELAVIC [Suspect]
     Dosage: 1500 MG, QD
     Route: 048
     Dates: start: 20120605, end: 20120618
  13. URSO [Concomitant]
     Indication: CHRONIC HEPATITIS C
     Dosage: UNK, TID : FORMULATION: POR (UNSPECIFIED)
     Route: 048
     Dates: end: 20120507
  14. NAUZELIN [Concomitant]
     Indication: PROPHYLAXIS
     Dosage: UNK, PRN, FORMULATION: POR
     Route: 048
     Dates: start: 20120302
  15. ZYLORIC [Concomitant]
     Indication: PROPHYLAXIS
     Dosage: 200 MG, QD, FORMULATION: POR (UNSPECIFIED)
     Route: 048
     Dates: start: 20120417

REACTIONS (2)
  - Anaemia [Recovered/Resolved]
  - Anaemia [Recovering/Resolving]
